FAERS Safety Report 16423992 (Version 6)
Quarter: 2020Q4

REPORT INFORMATION
  Report Type: Report from Study
  Country: None (occurrence: US)
  Receive Date: 20190613
  Receipt Date: 20201119
  Transmission Date: 20210113
  Serious: Yes (Other)
  Sender: FDA-Public Use
  Company Number: US-INSMED, INC.-US-INS-19-01773

PATIENT
  Age: 58 Year
  Sex: Female

DRUGS (2)
  1. ARIKAYCE [Suspect]
     Active Substance: AMIKACIN
     Route: 055
     Dates: end: 2020
  2. ARIKAYCE [Suspect]
     Active Substance: AMIKACIN
     Indication: PSEUDOMONAS INFECTION
     Route: 055
     Dates: start: 20190516, end: 20190605

REACTIONS (9)
  - Drug ineffective [Unknown]
  - Pharyngeal erythema [Not Recovered/Not Resolved]
  - Oropharyngeal pain [Not Recovered/Not Resolved]
  - Drug tolerance [Unknown]
  - Cellulitis [Unknown]
  - Pharyngeal haemorrhage [Not Recovered/Not Resolved]
  - Throat irritation [Not Recovered/Not Resolved]
  - Off label use [Unknown]
  - Cough [Unknown]

NARRATIVE: CASE EVENT DATE: 20190601
